FAERS Safety Report 9165746 (Version 2)
Quarter: 2013Q2

REPORT INFORMATION
  Report Type: Spontaneous
  Country: AR (occurrence: AR)
  Receive Date: 20130315
  Receipt Date: 20130415
  Transmission Date: 20140414
  Serious: Yes (Hospitalization)
  Sender: FDA-Public Use
  Company Number: PHHY2013AR023599

PATIENT
  Age: 12 Year
  Sex: Female

DRUGS (10)
  1. METHYLPREDNISOLONE [Suspect]
     Indication: ACUTE LYMPHOCYTIC LEUKAEMIA
     Dosage: 30 MG, Q12H
  2. METHYLPREDNISOLONE [Suspect]
     Dosage: 25 MG, UNK
  3. SODIUM BICARBONATE [Concomitant]
     Dosage: 50 MEQ/L
  4. ALLOPURINOL [Concomitant]
  5. PLATELETS [Concomitant]
     Dosage: 5 U, UNK
  6. PLATELETS [Concomitant]
     Dosage: 5 U, UNK
  7. PLATELETS [Concomitant]
     Dosage: 5 U, UNK
  8. PLATELETS [Concomitant]
     Dosage: 5 U, UNK
  9. FUROSEMIDE [Concomitant]
  10. ANTACIDS [Concomitant]

REACTIONS (11)
  - Tumour lysis syndrome [Recovering/Resolving]
  - Haematochezia [Recovering/Resolving]
  - Hypotension [Recovering/Resolving]
  - Renal failure acute [Recovering/Resolving]
  - Haematuria [Recovering/Resolving]
  - Nephrocalcinosis [Recovering/Resolving]
  - Nephrolithiasis [Recovering/Resolving]
  - Kidney enlargement [Recovering/Resolving]
  - Depressed level of consciousness [Recovering/Resolving]
  - Urine output decreased [Recovering/Resolving]
  - Haemorrhagic diathesis [Recovering/Resolving]
